FAERS Safety Report 24987957 (Version 1)
Quarter: 2025Q1

REPORT INFORMATION
  Report Type: Spontaneous
  Country: US (occurrence: US)
  Receive Date: 20250219
  Receipt Date: 20250219
  Transmission Date: 20250409
  Serious: Yes (Other)
  Sender: Haleon PLC
  Company Number: US-HALEON-2228463

PATIENT
  Age: 69 Year
  Sex: Female

DRUGS (13)
  1. FLONASE [Suspect]
     Active Substance: FLUTICASONE PROPIONATE
     Indication: Rhinitis allergic
     Route: 045
  2. ENBREL [Suspect]
     Active Substance: ETANERCEPT
     Indication: Rheumatoid arthritis
     Route: 058
  3. VITAMIN C [Suspect]
     Active Substance: ASCORBIC ACID
     Indication: Product used for unknown indication
     Route: 048
  4. VITAMIN D3 [Suspect]
     Active Substance: CHOLECALCIFEROL
     Indication: Product used for unknown indication
     Route: 048
  5. FERROUS FUMARATE [Suspect]
     Active Substance: FERROUS FUMARATE
     Indication: Product used for unknown indication
     Route: 048
  6. FOLVITE [Suspect]
     Active Substance: FOLIC ACID
     Indication: Product used for unknown indication
     Route: 048
  7. SYNTHROID [Suspect]
     Active Substance: LEVOTHYROXINE SODIUM
     Indication: Product used for unknown indication
     Dosage: SPACE 2 HOURS FROM ALL OTHER MEDICATION
     Route: 048
  8. COZAAR [Suspect]
     Active Substance: LOSARTAN POTASSIUM
     Indication: Product used for unknown indication
     Route: 048
  9. ZOLOFT [Suspect]
     Active Substance: SERTRALINE HYDROCHLORIDE
     Indication: Product used for unknown indication
     Route: 048
  10. METHOTREXATE [Suspect]
     Active Substance: METHOTREXATE
     Indication: Rheumatoid arthritis
     Route: 048
  11. MICROZIDE [Suspect]
     Active Substance: HYDROCHLOROTHIAZIDE
     Indication: Product used for unknown indication
     Route: 048
  12. XYZAL [Suspect]
     Active Substance: LEVOCETIRIZINE DIHYDROCHLORIDE
     Indication: Product used for unknown indication
     Route: 048
  13. BACTROBAN [Suspect]
     Active Substance: MUPIROCIN CALCIUM
     Indication: Product used for unknown indication
     Route: 065

REACTIONS (33)
  - Beta haemolytic streptococcal infection [Unknown]
  - Wound infection staphylococcal [Unknown]
  - Pulmonary valve incompetence [Unknown]
  - Mitral valve incompetence [Unknown]
  - Transitional cell carcinoma [Unknown]
  - Tricuspid valve incompetence [Unknown]
  - Hypothyroidism [Unknown]
  - Autoimmune thyroiditis [Unknown]
  - Aortic valve incompetence [Unknown]
  - Central serous chorioretinopathy [Unknown]
  - Oral candidiasis [Unknown]
  - Arthralgia [Unknown]
  - Joint swelling [Unknown]
  - Joint effusion [Unknown]
  - Sinusitis [Unknown]
  - Nasal vestibulitis [Unknown]
  - Ventricular dyskinesia [Unknown]
  - Sensation of foreign body [Unknown]
  - Thyroid mass [Unknown]
  - Obstructive sleep apnoea syndrome [Unknown]
  - Small airways disease [Unknown]
  - Upper-airway cough syndrome [Unknown]
  - Dysplastic naevus [Unknown]
  - Epistaxis [Unknown]
  - Dry mouth [Unknown]
  - Thyroid calcification [Unknown]
  - Cough [Unknown]
  - Ejection fraction decreased [Unknown]
  - Foot deformity [Unknown]
  - Tendon disorder [Unknown]
  - Joint stiffness [Unknown]
  - Wound [Unknown]
  - Dry eye [Unknown]
